FAERS Safety Report 8996772 (Version 1)
Quarter: 2012Q4

REPORT INFORMATION
  Report Type: Spontaneous
  Country: US (occurrence: None)
  Receive Date: 20121228
  Receipt Date: 20121228
  Transmission Date: 20130627
  Serious: Yes (Life-Threatening, Hospitalization, Other)
  Sender: FDA-Public Use
  Company Number: None

PATIENT
  Age: 78 Year
  Sex: Female
  Weight: 61.24 kg

DRUGS (2)
  1. CALCITONIN SALMON [Suspect]
     Indication: OSTEOPOROSIS
     Dosage: Nasal Inhaler
     Route: 045
  2. CALCITONIN SALMON [Suspect]
     Indication: BONE MINERAL CONTENT DECREASED
     Dosage: Nasal Inhaler
     Route: 045

REACTIONS (13)
  - Fatigue [None]
  - Flushing [None]
  - Night sweats [None]
  - Sinus headache [None]
  - Diabetes mellitus inadequate control [None]
  - Dyspnoea [None]
  - Cough [None]
  - Heart rate increased [None]
  - Muscle spasms [None]
  - Muscle spasms [None]
  - Back pain [None]
  - Asthma [None]
  - Bronchitis [None]
